FAERS Safety Report 23695286 (Version 3)
Quarter: 2024Q2

REPORT INFORMATION
  Report Type: Spontaneous
  Country: JP (occurrence: JP)
  Receive Date: 20240402
  Receipt Date: 20240422
  Transmission Date: 20240716
  Serious: Yes (Death, Life-Threatening, Hospitalization, Other)
  Sender: FDA-Public Use
  Company Number: JP-Accord-415940

PATIENT
  Age: 68 Year
  Sex: Female

DRUGS (3)
  1. CAPECITABINE [Suspect]
     Active Substance: CAPECITABINE
     Indication: Triple negative breast cancer
     Dosage: 3000 MG/BODY
  2. CAPECITABINE [Suspect]
     Active Substance: CAPECITABINE
     Indication: Breast cancer stage III
  3. CAPECITABINE [Suspect]
     Active Substance: CAPECITABINE
     Indication: Chemotherapy

REACTIONS (3)
  - Pulmonary tumour thrombotic microangiopathy [Fatal]
  - Interstitial lung disease [Fatal]
  - Disseminated intravascular coagulation [Fatal]
